FAERS Safety Report 23058534 (Version 2)
Quarter: 2024Q1

REPORT INFORMATION
  Report Type: Spontaneous
  Country: GB (occurrence: GB)
  Receive Date: 20231012
  Receipt Date: 20240131
  Transmission Date: 20240410
  Serious: Yes (Hospitalization, Other)
  Sender: FDA-Public Use
  Company Number: GB-Hikma Pharmaceuticals USA Inc.-GB-H14001-22-00960

PATIENT
  Age: 68 Year
  Sex: Female
  Weight: 46.3 kg

DRUGS (5)
  1. AMOXICILLIN\CLAVULANIC ACID [Suspect]
     Active Substance: AMOXICILLIN\CLAVULANIC ACID
     Indication: Prophylaxis
     Dosage: UNK
     Route: 050
     Dates: start: 20220318, end: 20220322
  2. CARBOPLATIN [Suspect]
     Active Substance: CARBOPLATIN
     Dosage: AUC 4 (ON DAY 1 OF EACH 28-DAY CYCLE); ;
     Route: 050
     Dates: start: 20220405, end: 20220405
  3. CARBOPLATIN [Suspect]
     Active Substance: CARBOPLATIN
     Indication: Anal squamous cell carcinoma
     Dosage: UNK,AUC 5 (ON DAY 1 OF EACH 28-DAY CYCLE); ;
     Route: 050
     Dates: start: 20220308, end: 20220308
  4. PACLITAXEL [Suspect]
     Active Substance: PACLITAXEL
     Indication: Anal squamous cell carcinoma
     Dosage: 80 MG/M2,80 MILLIGRAM/SQ. METER (ON DAY 1, 8 AND 15 OF EACH 28-DAY CYCLE);FREQUENCY TEXT : DAY 1
     Route: 050
     Dates: start: 20220308, end: 20220308
  5. PACLITAXEL [Suspect]
     Active Substance: PACLITAXEL
     Dosage: 80 MILLIGRAM/SQ. METER (ON DAY 1, 8 AND 15 OF EACH 28-DAY CYCLE);
     Route: 050
     Dates: start: 20220314, end: 20220314

REACTIONS (7)
  - Dizziness [Recovered/Resolved]
  - Fall [Recovered/Resolved]
  - Diarrhoea [Recovered/Resolved]
  - Vomiting [Recovered/Resolved]
  - Blood pressure systolic decreased [Unknown]
  - Orthostatic hypotension [Unknown]
  - Dehydration [Unknown]

NARRATIVE: CASE EVENT DATE: 20220316
